FAERS Safety Report 6825325-1 (Version None)
Quarter: 2010Q3

REPORT INFORMATION
  Report Type: 
  Country: None (occurrence: None)
  Receive Date: 20100708
  Receipt Date: 20061127
  Transmission Date: 20110219
  Serious: No
  Sender: FDA-Public Use
  Company Number: US-PFIZER INC-2006148834

PATIENT

DRUGS (3)
  1. CHANTIX [Suspect]
  2. WARFARIN [Interacting]
  3. ANTIPSYCHOTICS [Interacting]

REACTIONS (2)
  - DRUG INTERACTION [None]
  - DRUG LEVEL INCREASED [None]
